FAERS Safety Report 22312373 (Version 1)
Quarter: 2023Q2

REPORT INFORMATION
  Report Type: Spontaneous
  Country: JP (occurrence: JP)
  Receive Date: 20230512
  Receipt Date: 20230512
  Transmission Date: 20230721
  Serious: Yes (Death, Other)
  Sender: FDA-Public Use
  Company Number: JP-AJANTA-2023AJA00075

PATIENT
  Age: 68 Year
  Sex: Male

DRUGS (4)
  1. CLARITHROMYCIN [Suspect]
     Active Substance: CLARITHROMYCIN
     Indication: Mycobacterium avium complex infection
     Dosage: 2 YEARS
  2. ETHAMBUTOL [Suspect]
     Active Substance: ETHAMBUTOL HYDROCHLORIDE
     Indication: Mycobacterium avium complex infection
     Dosage: 2 YEARS
  3. RIFAMPIN [Suspect]
     Active Substance: RIFAMPIN
     Indication: Mycobacterium avium complex infection
     Dosage: 2 YEARS
  4. STREPTOMYCIN [Suspect]
     Active Substance: STREPTOMYCIN SULFATE
     Indication: Product used for unknown indication
     Dosage: 7 MONTHS
     Route: 030

REACTIONS (5)
  - Treatment failure [Fatal]
  - Bronchopleural fistula [Fatal]
  - Pneumonia [Fatal]
  - Drug resistance [Fatal]
  - Pleurisy bacterial [Fatal]
